FAERS Safety Report 9824823 (Version 1)
Quarter: 2014Q1

REPORT INFORMATION
  Report Type: Spontaneous
  Country: US (occurrence: US)
  Receive Date: 20140117
  Receipt Date: 20140117
  Transmission Date: 20141002
  Serious: No
  Sender: FDA-Public Use
  Company Number: US-BIOGENIDEC-2014BI004641

PATIENT
  Sex: Female

DRUGS (1)
  1. TYSABRI [Suspect]
     Indication: MULTIPLE SCLEROSIS
     Route: 042
     Dates: start: 20110106

REACTIONS (7)
  - Paraparesis [Unknown]
  - Optic neuritis [Unknown]
  - Dyskinesia [Unknown]
  - Neurogenic bladder [Unknown]
  - Muscle spasms [Unknown]
  - Paraesthesia [Unknown]
  - Fatigue [Unknown]
